FAERS Safety Report 18465771 (Version 2)
Quarter: 2020Q4

REPORT INFORMATION
  Report Type: Report from Study
  Country: JP (occurrence: JP)
  Receive Date: 20201104
  Receipt Date: 20201221
  Transmission Date: 20210114
  Serious: Yes (Hospitalization, Other)
  Sender: FDA-Public Use
  Company Number: JP-SA-2020SA305078

PATIENT

DRUGS (34)
  1. IRINOTECAN [Suspect]
     Active Substance: IRINOTECAN
     Dosage: 150 MG/M2, QOW
     Route: 065
     Dates: start: 20191122, end: 20191206
  2. IRINOTECAN [Suspect]
     Active Substance: IRINOTECAN
     Dosage: 150 MG/M2, 1X
     Route: 065
     Dates: start: 20200312, end: 20200312
  3. FLUOROURACIL. [Suspect]
     Active Substance: FLUOROURACIL
     Dosage: 1920 MG/M2, 1X
     Route: 041
     Dates: start: 20190510, end: 20190510
  4. FLUOROURACIL. [Suspect]
     Active Substance: FLUOROURACIL
     Dosage: 2400 MG/M2, QOW
     Route: 041
     Dates: start: 20191227, end: 20200124
  5. AFLIBERCEPT [Suspect]
     Active Substance: AFLIBERCEPT
     Indication: RECTAL CANCER
     Dosage: 4 MG/KG, QOW
     Route: 041
     Dates: start: 20190802, end: 20190816
  6. CALCIUM FOLINATE [Suspect]
     Active Substance: LEUCOVORIN CALCIUM
     Dosage: 200 MG/M2, QOW
     Route: 065
     Dates: start: 20191122, end: 20191206
  7. CALCIUM FOLINATE [Suspect]
     Active Substance: LEUCOVORIN CALCIUM
     Dosage: 200 MG/M2, QOW
     Route: 065
     Dates: start: 20191227, end: 20200124
  8. IRINOTECAN [Suspect]
     Active Substance: IRINOTECAN
     Indication: RECTAL CANCER
     Dosage: 150 MG/M2, QOW
     Route: 065
     Dates: start: 20190802, end: 20190816
  9. IRINOTECAN [Suspect]
     Active Substance: IRINOTECAN
     Dosage: 150 MG/M2, 1X
     Route: 065
     Dates: start: 20190510, end: 20190510
  10. FLUOROURACIL. [Suspect]
     Active Substance: FLUOROURACIL
     Indication: RECTAL CANCER
     Dosage: 2400 MG/M2, QOW
     Route: 041
     Dates: start: 20190802, end: 20190816
  11. FLUOROURACIL. [Suspect]
     Active Substance: FLUOROURACIL
     Dosage: 400 MG/M2, QOW
     Route: 040
     Dates: start: 20190802, end: 20190816
  12. FLUOROURACIL. [Suspect]
     Active Substance: FLUOROURACIL
     Dosage: 400 MG/M2, QOW
     Route: 040
     Dates: start: 20191227, end: 20200124
  13. AFLIBERCEPT [Suspect]
     Active Substance: AFLIBERCEPT
     Dosage: 4 MG/KG, 1X
     Route: 041
     Dates: start: 20190510, end: 20190510
  14. AFLIBERCEPT [Suspect]
     Active Substance: AFLIBERCEPT
     Dosage: 4 MG/KG, QOW
     Route: 041
     Dates: start: 20191122, end: 20191206
  15. CALCIUM FOLINATE [Suspect]
     Active Substance: LEUCOVORIN CALCIUM
     Dosage: 200 MG/M2, QOW
     Route: 065
     Dates: start: 20190125, end: 20190419
  16. FLUOROURACIL. [Suspect]
     Active Substance: FLUOROURACIL
     Dosage: 1920 MG/M2, QOW
     Route: 041
     Dates: start: 20190125, end: 20190419
  17. FLUOROURACIL. [Suspect]
     Active Substance: FLUOROURACIL
     Dosage: 320 MG/M2, QOW
     Route: 040
     Dates: start: 20190125, end: 20190419
  18. FLUOROURACIL. [Suspect]
     Active Substance: FLUOROURACIL
     Dosage: 2400 MG/M2, QOW
     Route: 041
     Dates: start: 20191122, end: 20191206
  19. FLUOROURACIL. [Suspect]
     Active Substance: FLUOROURACIL
     Dosage: 2400 MG/M2, 1X
     Route: 041
     Dates: start: 20200312, end: 20200312
  20. AFLIBERCEPT [Suspect]
     Active Substance: AFLIBERCEPT
     Dosage: 4 MG/KG, 1X
     Route: 041
     Dates: start: 20191106, end: 20191106
  21. AFLIBERCEPT [Suspect]
     Active Substance: AFLIBERCEPT
     Dosage: 4 MG/KG, QOW
     Route: 041
     Dates: start: 20191227, end: 20200124
  22. CALCIUM FOLINATE [Suspect]
     Active Substance: LEUCOVORIN CALCIUM
     Dosage: 200 MG/M2, 1X
     Route: 065
     Dates: start: 20191106, end: 20191106
  23. CALCIUM FOLINATE [Suspect]
     Active Substance: LEUCOVORIN CALCIUM
     Dosage: 200 MG/M2, 1X
     Route: 065
     Dates: start: 20200312, end: 20200312
  24. IRINOTECAN [Suspect]
     Active Substance: IRINOTECAN
     Dosage: 150 MG/M2, QOW
     Route: 065
     Dates: start: 20190125, end: 20190419
  25. FLUOROURACIL. [Suspect]
     Active Substance: FLUOROURACIL
     Dosage: 320 MG/M2, 1X
     Route: 040
     Dates: start: 20190510, end: 20190510
  26. FLUOROURACIL. [Suspect]
     Active Substance: FLUOROURACIL
     Dosage: 400 MG/M2, QOW
     Route: 040
     Dates: start: 20191122, end: 20191206
  27. CALCIUM FOLINATE [Suspect]
     Active Substance: LEUCOVORIN CALCIUM
     Dosage: 200 MG/M2, 1X
     Route: 065
     Dates: start: 20190510, end: 20190510
  28. IRINOTECAN [Suspect]
     Active Substance: IRINOTECAN
     Dosage: 150 MG/M2, QOW
     Route: 065
     Dates: start: 20191227, end: 20200124
  29. FLUOROURACIL. [Suspect]
     Active Substance: FLUOROURACIL
     Dosage: 2400 MG/M2, 1X
     Route: 041
     Dates: start: 20191106, end: 20191106
  30. AFLIBERCEPT [Suspect]
     Active Substance: AFLIBERCEPT
     Dosage: 4 MG/KG, QOW
     Route: 041
     Dates: start: 20190125, end: 20190419
  31. CALCIUM FOLINATE [Suspect]
     Active Substance: LEUCOVORIN CALCIUM
     Indication: RECTAL CANCER
     Dosage: 200 MG/M2, QOW
     Route: 065
     Dates: start: 20190802, end: 20190816
  32. IRINOTECAN [Suspect]
     Active Substance: IRINOTECAN
     Dosage: 150 MG/M2, 1X
     Route: 065
     Dates: start: 20191106, end: 20191106
  33. FLUOROURACIL. [Suspect]
     Active Substance: FLUOROURACIL
     Dosage: 400 MG/M2, 1X
     Route: 040
     Dates: start: 20191106, end: 20191106
  34. FLUOROURACIL. [Suspect]
     Active Substance: FLUOROURACIL
     Dosage: 400 MG/M2, 1X
     Route: 040
     Dates: start: 20200312, end: 20200312

REACTIONS (18)
  - Device related sepsis [Recovered/Resolved]
  - Fall [Recovered/Resolved]
  - Tibia fracture [Recovered/Resolved]
  - Sepsis [Recovered/Resolved]
  - Fibula fracture [Recovered/Resolved]
  - Urinary retention [Recovered/Resolved]
  - Hydronephrosis [Recovered/Resolved]
  - Pyelonephritis [Recovered/Resolved]
  - Intestinal obstruction [Recovered/Resolved]
  - Hyponatraemia [Recovered/Resolved]
  - Blood creatinine increased [Recovered/Resolved]
  - Proteinuria [Recovered/Resolved]
  - Blood creatinine increased [Recovered/Resolved]
  - Hypokalaemia [Recovered/Resolved]
  - Hypokalaemia [Recovered/Resolved]
  - Blood alkaline phosphatase increased [Recovered/Resolved]
  - Hypoalbuminaemia [Not Recovered/Not Resolved]
  - Aspartate aminotransferase increased [Recovered/Resolved]

NARRATIVE: CASE EVENT DATE: 20190816
